FAERS Safety Report 5020738-5 (Version None)
Quarter: 2006Q2

REPORT INFORMATION
  Report Type: 
  Country: None (occurrence: None)
  Receive Date: 20060601
  Receipt Date: 20060519
  Transmission Date: 20061013
  Serious: Yes (Life-Threatening, Hospitalization)
  Sender: FDA-Public Use
  Company Number: 14121

PATIENT
  Age: 51 Year
  Sex: Female
  Weight: 64.5 kg

DRUGS (3)
  1. ETOPOSIDE [Suspect]
     Dosage: 200 IV
     Route: 042
     Dates: start: 20060411, end: 20060414
  2. CARBOPLATIN [Suspect]
     Dosage: 540 IV
     Route: 042
     Dates: start: 20051228
  3. WARFARIN SODIUM [Concomitant]

REACTIONS (3)
  - INTERNATIONAL NORMALISED RATIO INCREASED [None]
  - NEUTROPENIC SEPSIS [None]
  - THROMBOCYTOPENIA [None]
